FAERS Safety Report 16481958 (Version 1)
Quarter: 2019Q2

REPORT INFORMATION
  Report Type: Spontaneous
  Country: ES (occurrence: ES)
  Receive Date: 20190627
  Receipt Date: 20190627
  Transmission Date: 20190711
  Serious: Yes (Other)
  Sender: FDA-Public Use
  Company Number: ES-SA-2019SA165846

PATIENT
  Age: 91 Year
  Sex: Female

DRUGS (15)
  1. ENALAPRIL MALEATE AND HYDROCHLOROTHIAZIDE [Interacting]
     Active Substance: ENALAPRIL MALEATE\HYDROCHLOROTHIAZIDE
     Indication: CARDIAC FAILURE
     Dosage: 1-0-0 (24 HRS)
     Route: 048
     Dates: start: 2012, end: 20180720
  2. ENALAPRIL MALEATE AND HYDROCHLOROTHIAZIDE [Interacting]
     Active Substance: ENALAPRIL MALEATE\HYDROCHLOROTHIAZIDE
     Indication: HYPERTENSION
  3. TORASEMIDE [Interacting]
     Active Substance: TORSEMIDE
     Indication: CARDIAC FAILURE
  4. DEMILOS [Concomitant]
     Active Substance: CALCIUM CARBONATE\CHOLECALCIFEROL
     Dosage: UNK
     Route: 002
  5. DUPHALAC [Concomitant]
     Active Substance: LACTULOSE
     Dosage: UNK
     Route: 048
  6. FERRO SANOL [Concomitant]
     Active Substance: FERROUS GLYCINE SULFATE
     Dosage: UNK
     Route: 048
  7. STILNOX [Concomitant]
     Active Substance: ZOLPIDEM TARTRATE
     Dosage: UNK
     Route: 048
  8. ACETYLSALICYLIC ACID [Interacting]
     Active Substance: ASPIRIN
     Indication: PROPHYLAXIS
     Dosage: 0-1-0
     Route: 048
     Dates: start: 2015
  9. GLIMEPIRIDE. [Suspect]
     Active Substance: GLIMEPIRIDE
     Indication: HYPERTENSION
     Dosage: 1/2-0-0
     Route: 048
     Dates: start: 20180412, end: 20180720
  10. TORASEMIDE [Interacting]
     Active Substance: TORSEMIDE
     Indication: HYPERTENSION
     Dosage: 1-0-0. 1 EVERY 24 HOURS
     Route: 048
     Dates: start: 20180719, end: 20180720
  11. EUTIROX [Concomitant]
     Active Substance: LEVOTHYROXINE SODIUM
     Dosage: UNK
     Route: 048
  12. ESOMEPRAZOL [ESOMEPRAZOLE] [Concomitant]
     Dosage: UNK
     Route: 048
  13. GLIMEPIRIDE. [Interacting]
     Active Substance: GLIMEPIRIDE
     Indication: CARDIAC FAILURE
  14. SOMAZINA [CITICOLINE SODIUM] [Concomitant]
     Dosage: UNK
     Route: 048
  15. PARACETAMOL [Concomitant]
     Active Substance: ACETAMINOPHEN
     Dosage: UNK
     Route: 048

REACTIONS (2)
  - Drug interaction [Unknown]
  - Acute kidney injury [Recovered/Resolved]

NARRATIVE: CASE EVENT DATE: 201807
